FAERS Safety Report 4489280-4 (Version None)
Quarter: 2004Q4

REPORT INFORMATION
  Report Type: 
  Country: None (occurrence: None)
  Receive Date: 20041026
  Receipt Date: 20031202
  Transmission Date: 20050328
  Serious: Yes (Disabling)
  Sender: FDA-Public Use
  Company Number: 04H-055-0277987-00

PATIENT
  Age: 79 Year
  Sex: Female

DRUGS (9)
  1. VANCOMYCIN [Suspect]
     Dosage: 1 MG, ONCE, SUBCUTANEOUS TO EYE
     Route: 058
     Dates: start: 20031126, end: 20031126
  2. OKUC [Concomitant]
  3. AMETHOL [Concomitant]
  4. OFTAQUIX [Concomitant]
  5. VISION BLUE 0.5 ML [Concomitant]
  6. MIOCOL-E 10 MG/ML [Concomitant]
  7. LIDOCAIN 1% [Concomitant]
  8. AHO 500 ML ENDESOL [Concomitant]
  9. RINSING LIQUID + KACL 0.5 MG [Concomitant]

REACTIONS (1)
  - CONJUNCTIVAL DISORDER [None]
